FAERS Safety Report 13641838 (Version 2)
Quarter: 2017Q3

REPORT INFORMATION
  Report Type: Spontaneous
  Country: US (occurrence: US)
  Receive Date: 20170612
  Receipt Date: 20170727
  Transmission Date: 20171127
  Serious: No
  Sender: FDA-Public Use
  Company Number: US-PFIZER INC-2017254404

PATIENT
  Age: 57 Year
  Sex: Male

DRUGS (3)
  1. GABAPENTIN. [Concomitant]
     Active Substance: GABAPENTIN
     Dosage: UNK
     Dates: start: 201702
  2. LYRICA [Suspect]
     Active Substance: PREGABALIN
     Dosage: 150 MG, 3X/DAY
     Dates: start: 201706
  3. LYRICA [Suspect]
     Active Substance: PREGABALIN
     Indication: NEUROPATHY PERIPHERAL
     Dosage: 100 MG, UNK

REACTIONS (3)
  - Pain [Recovering/Resolving]
  - Gait disturbance [Recovering/Resolving]
  - Drug effect incomplete [Unknown]

NARRATIVE: CASE EVENT DATE: 201705
